FAERS Safety Report 5821688-4 (Version None)
Quarter: 2008Q3

REPORT INFORMATION
  Report Type: 
  Country: None (occurrence: None)
  Receive Date: 20080724
  Receipt Date: 20080714
  Transmission Date: 20090109
  Serious: Yes (Hospitalization)
  Sender: FDA-Public Use
  Company Number: JP-EISAI MEDIAL RESEARCH-E3810-02018-SPO-JP

PATIENT
  Age: 81 Year
  Sex: Male

DRUGS (3)
  1. RABEPRAZOLE SODIUM [Suspect]
     Indication: GASTRIC ULCER
     Route: 048
     Dates: start: 20080520, end: 20080627
  2. RABEPRAZOLE SODIUM [Suspect]
     Route: 048
     Dates: start: 20080428, end: 20080519
  3. INSULIN [Concomitant]

REACTIONS (1)
  - HYPONATRAEMIA [None]
